FAERS Safety Report 6955422-1 (Version None)
Quarter: 2010Q3

REPORT INFORMATION
  Report Type: 
  Country: None (occurrence: None)
  Receive Date: 20100830
  Receipt Date: 20100819
  Transmission Date: 20110219
  Serious: Yes (Other)
  Sender: FDA-Public Use
  Company Number: US-AMGEN-QUU432744

PATIENT
  Sex: Female

DRUGS (1)
  1. ENBREL [Suspect]
     Indication: ANKYLOSING SPONDYLITIS
     Route: 064
     Dates: start: 20080101, end: 20091001

REACTIONS (3)
  - CEREBRAL INFARCTION [None]
  - PREMATURE BABY [None]
  - RENAL APLASIA [None]
